FAERS Safety Report 16919862 (Version 1)
Quarter: 2019Q4

REPORT INFORMATION
  Report Type: Spontaneous
  Country: US (occurrence: US)
  Receive Date: 20191015
  Receipt Date: 20191015
  Transmission Date: 20200122
  Serious: Yes (Other)
  Sender: FDA-Public Use
  Company Number: US-JNJFOC-20191012700

PATIENT
  Age: 80 Year
  Sex: Female

DRUGS (13)
  1. OMEPRAZOLE. [Concomitant]
     Active Substance: OMEPRAZOLE
  2. ASACOL HD [Concomitant]
     Active Substance: MESALAMINE
  3. RUXOLITINIB PHOSPHATE [Suspect]
     Active Substance: RUXOLITINIB PHOSPHATE
     Indication: POLYCYTHAEMIA VERA
     Route: 048
  4. MAGNESIUM                          /00082501/ [Concomitant]
     Active Substance: ALUMINUM HYDROXIDE\MAGNESIUM HYDROXIDE
  5. MULTIVITAMIN                       /02160401/ [Concomitant]
     Active Substance: VITAMINS
  6. LEVOTHYROXINE. [Concomitant]
     Active Substance: LEVOTHYROXINE
  7. SERTRALINE HCL [Concomitant]
     Active Substance: SERTRALINE HYDROCHLORIDE
  8. VITAMIN D3 [Concomitant]
     Active Substance: CHOLECALCIFEROL
  9. LISINOPRIL. [Concomitant]
     Active Substance: LISINOPRIL
  10. XARELTO [Suspect]
     Active Substance: RIVAROXABAN
     Indication: PRODUCT USED FOR UNKNOWN INDICATION
     Route: 048
  11. LIALDA [Concomitant]
     Active Substance: MESALAMINE
  12. ASPRIN [Concomitant]
     Active Substance: ASPIRIN
  13. METHYLPREDNISOLONE                 /00049603/ [Concomitant]
     Active Substance: METHYLPREDNISOLONE

REACTIONS (7)
  - Peripheral swelling [Unknown]
  - Arthropod bite [Unknown]
  - Contusion [Unknown]
  - Fatigue [Unknown]
  - Diarrhoea [Unknown]
  - Thrombosis [Unknown]
  - Urticaria [Unknown]

NARRATIVE: CASE EVENT DATE: 201905
